FAERS Safety Report 6110104-3 (Version None)
Quarter: 2009Q1

REPORT INFORMATION
  Report Type: 
  Country: None (occurrence: None)
  Receive Date: 20090310
  Receipt Date: 20090305
  Transmission Date: 20090719
  Serious: Yes (Hospitalization)
  Sender: FDA-Public Use
  Company Number: US-MERCK-0902USA04265

PATIENT
  Age: 47 Year
  Sex: Female
  Weight: 72 kg

DRUGS (16)
  1. EMEND [Suspect]
     Indication: PROPHYLAXIS OF NAUSEA AND VOMITING
     Route: 048
     Dates: start: 20090115, end: 20090115
  2. FENTANYL [Concomitant]
     Route: 065
     Dates: start: 20090115
  3. FENTANYL [Concomitant]
     Route: 065
     Dates: start: 20090115
  4. FENTANYL [Concomitant]
     Route: 065
     Dates: start: 20090115
  5. ZOLOFT [Concomitant]
     Route: 065
  6. VITAMINS (UNSPECIFIED) [Concomitant]
     Route: 065
  7. CELEXA [Concomitant]
     Route: 065
  8. SEVOFLURANE [Concomitant]
     Route: 065
     Dates: start: 20090115
  9. DESFLURANE [Concomitant]
     Route: 065
     Dates: start: 20090115, end: 20090115
  10. DEXAMETHASONE [Concomitant]
     Route: 065
     Dates: start: 20090115
  11. PROPOFOL [Concomitant]
     Route: 065
     Dates: start: 20090115
  12. VECURONIUM BROMIDE [Concomitant]
     Indication: MUSCLE RELAXANT THERAPY
     Route: 065
     Dates: start: 20090115
  13. VECURONIUM BROMIDE [Concomitant]
     Route: 065
     Dates: start: 20090115
  14. GLYCOPYRROLATE [Concomitant]
     Route: 065
     Dates: start: 20090115
  15. VERSED [Concomitant]
     Route: 065
     Dates: start: 20090115
  16. NEURONTIN [Concomitant]
     Route: 065
     Dates: end: 20090115

REACTIONS (11)
  - ADVERSE DRUG REACTION [None]
  - CERVICAL SPINAL STENOSIS [None]
  - CLONUS [None]
  - DEPRESSED LEVEL OF CONSCIOUSNESS [None]
  - DYSKINESIA [None]
  - HEMIPARESIS [None]
  - MYDRIASIS [None]
  - PERONEAL NERVE PALSY [None]
  - POSTURING [None]
  - PULMONARY CONGESTION [None]
  - SPINAL OSTEOARTHRITIS [None]
